FAERS Safety Report 16658571 (Version 4)
Quarter: 2020Q1

REPORT INFORMATION
  Report Type: Spontaneous
  Country: CZ (occurrence: CZ)
  Receive Date: 20190801
  Receipt Date: 20200220
  Transmission Date: 20200409
  Serious: Yes (Death, Life-Threatening, Hospitalization, Other)
  Sender: FDA-Public Use
  Company Number: CZ-MYLANLABS-2019M1071854

PATIENT
  Age: 50 Year
  Sex: Male

DRUGS (9)
  1. METOPROLOL. [Suspect]
     Active Substance: METOPROLOL
     Indication: BLOOD PRESSURE MANAGEMENT
  2. METOPROLOL. [Suspect]
     Active Substance: METOPROLOL
     Indication: HYPERTENSION
     Dosage: UNK
     Route: 048
  3. METOPROLOL. [Suspect]
     Active Substance: METOPROLOL
     Indication: BLOOD PRESSURE MANAGEMENT
  4. BETAXOLOL HYDROCHLORIDE. [Suspect]
     Active Substance: BETAXOLOL HYDROCHLORIDE
     Indication: BLOOD PRESSURE MANAGEMENT
     Dosage: 20 MG, QD,MONOTHERAPY,
     Route: 048
  5. URAPIDIL [Suspect]
     Active Substance: URAPIDIL
     Indication: HYPERTENSION
     Dosage: UNK
     Route: 042
  6. METOPROLOL. [Suspect]
     Active Substance: METOPROLOL
     Indication: HYPERTENSION
     Dosage: UNK
     Route: 042
  7. URAPIDIL [Suspect]
     Active Substance: URAPIDIL
     Indication: BLOOD PRESSURE MANAGEMENT
     Dosage: UNK
     Route: 048
  8. URAPIDIL [Suspect]
     Active Substance: URAPIDIL
     Indication: BLOOD PRESSURE MANAGEMENT
     Dosage: UNK
     Route: 041
  9. BETAXOLOL HYDROCHLORIDE. [Suspect]
     Active Substance: BETAXOLOL HYDROCHLORIDE
     Indication: HYPERTENSION

REACTIONS (22)
  - Cerebellar ischaemia [Unknown]
  - Altered state of consciousness [Unknown]
  - Fibrin D dimer increased [Unknown]
  - Treatment noncompliance [Unknown]
  - Disease recurrence [Unknown]
  - Chest pain [Unknown]
  - Tachycardia [Unknown]
  - Drug ineffective [Unknown]
  - Pulse absent [Unknown]
  - Musculoskeletal pain [Unknown]
  - Back pain [Unknown]
  - Condition aggravated [Recovered/Resolved]
  - Medication error [Unknown]
  - Anxiety [Unknown]
  - Hypertension [Recovered/Resolved]
  - Coma [Fatal]
  - Neurological decompensation [Fatal]
  - Aortic dissection [Fatal]
  - Pain [Recovered/Resolved]
  - Disease progression [Unknown]
  - Hyperhidrosis [Unknown]
  - Cardiac tamponade [Unknown]

NARRATIVE: CASE EVENT DATE: 2018
